FAERS Safety Report 17699868 (Version 1)
Quarter: 2020Q2

REPORT INFORMATION
  Report Type: Report from Study
  Country: MX (occurrence: MX)
  Receive Date: 20200423
  Receipt Date: 20200423
  Transmission Date: 20200714
  Serious: Yes (Other)
  Sender: FDA-Public Use
  Company Number: NVSC2020MX108710

PATIENT
  Age: 73 Year
  Sex: Male
  Weight: 65 kg

DRUGS (2)
  1. CLONAZEPAM. [Concomitant]
     Active Substance: CLONAZEPAM
     Indication: SLEEP DISORDER
     Dosage: 1 DF, QD
     Route: 048
  2. EXFORGE [Suspect]
     Active Substance: AMLODIPINE BESYLATE\VALSARTAN
     Indication: HYPERTENSION
     Dosage: 1 DF, QD
     Route: 048

REACTIONS (7)
  - Constipation [Unknown]
  - Dyspepsia [Unknown]
  - Malaise [Unknown]
  - Flatulence [Unknown]
  - Prostate cancer [Unknown]
  - Fibrosis [Unknown]
  - Urinary incontinence [Not Recovered/Not Resolved]

NARRATIVE: CASE EVENT DATE: 201909
